FAERS Safety Report 24421213 (Version 1)
Quarter: 2024Q4

REPORT INFORMATION
  Report Type: Spontaneous
  Country: TW (occurrence: TW)
  Receive Date: 20241010
  Receipt Date: 20241010
  Transmission Date: 20250115
  Serious: Yes (Other)
  Sender: ROCHE
  Company Number: TW-ROCHE-10000095960

PATIENT
  Age: 81 Year
  Sex: Male

DRUGS (2)
  1. ATEZOLIZUMAB [Suspect]
     Active Substance: ATEZOLIZUMAB
     Indication: Hepatic cancer
     Dosage: UNKNOWN DOSE
     Route: 065
  2. BEVACIZUMAB [Suspect]
     Active Substance: BEVACIZUMAB
     Indication: Hepatic cancer
     Dosage: UNKNOWN DOSE
     Route: 065

REACTIONS (4)
  - Ascites [Unknown]
  - Gastric varices [Unknown]
  - Hepatic hydrothorax [Unknown]
  - Varices oesophageal [Unknown]
